FAERS Safety Report 14497547 (Version 5)
Quarter: 2018Q2

REPORT INFORMATION
  Report Type: Report from Study
  Country: US (occurrence: US)
  Receive Date: 20180207
  Receipt Date: 20180413
  Transmission Date: 20180711
  Serious: Yes (Other)
  Sender: FDA-Public Use
  Company Number: US-PFIZER INC-2018027078

PATIENT
  Age: 62 Year
  Sex: Female

DRUGS (2)
  1. IBRANCE [Suspect]
     Active Substance: PALBOCICLIB
     Indication: BREAST CANCER FEMALE
     Dosage: 125 MG, CYCLIC (DAILY; 3 WEEKS ON/1 WEEK OFF)
     Route: 048
     Dates: start: 20170727
  2. IBRANCE [Suspect]
     Active Substance: PALBOCICLIB
     Dosage: 125 MG, CYCLIC (DAILY; 3 WEEKS ON/1 WEEK OFF)
     Route: 048
     Dates: start: 20180105

REACTIONS (14)
  - Mental impairment [Unknown]
  - Tinnitus [Unknown]
  - Anger [Unknown]
  - Balance disorder [Unknown]
  - Fatigue [Recovered/Resolved]
  - Diarrhoea [Recovered/Resolved]
  - Headache [Unknown]
  - Hot flush [Recovered/Resolved]
  - Arthropod bite [Recovering/Resolving]
  - Disturbance in attention [Unknown]
  - Bradyphrenia [Unknown]
  - Pruritus [Recovering/Resolving]
  - Blood pressure decreased [Unknown]
  - Contusion [Recovering/Resolving]

NARRATIVE: CASE EVENT DATE: 2018
